FAERS Safety Report 7465995-0 (Version None)
Quarter: 2011Q2

REPORT INFORMATION
  Report Type: 
  Country: None (occurrence: None)
  Receive Date: 20110509
  Receipt Date: 20100514
  Transmission Date: 20111010
  Serious: No
  Sender: FDA-Public Use
  Company Number: US-ALEXION-A201000558

PATIENT
  Sex: Female

DRUGS (1)
  1. SOLIRIS [Suspect]
     Dosage: UNK

REACTIONS (11)
  - HAEMOGLOBINURIA [None]
  - DYSPHAGIA [None]
  - NAUSEA [None]
  - UNEVALUABLE EVENT [None]
  - DRUG DOSE OMISSION [None]
  - DYSPNOEA [None]
  - EPISTAXIS [None]
  - INFLUENZA [None]
  - ABDOMINAL PAIN [None]
  - BACK PAIN [None]
  - FATIGUE [None]
